FAERS Safety Report 5789320-6 (Version None)
Quarter: 2008Q2

REPORT INFORMATION
  Report Type: 
  Country: None (occurrence: None)
  Receive Date: 20080623
  Receipt Date: 20080605
  Transmission Date: 20081010
  Serious: Yes (Hospitalization)
  Sender: FDA-Public Use
  Company Number: 85406

PATIENT
  Age: 81 Year
  Sex: Male
  Weight: 89 kg

DRUGS (4)
  1. IBUPROFEN [Suspect]
     Indication: PAIN
     Dosage: 400MG/ 6/1 DAYS/ORAL
     Route: 048
     Dates: start: 20080421, end: 20080520
  2. ACETAMINOPHEN W/ CODEINE [Concomitant]
  3. DUTASTERIDE [Concomitant]
  4. TAMSULOSIN HCL [Concomitant]

REACTIONS (1)
  - DUODENAL ULCER HAEMORRHAGE [None]
